FAERS Safety Report 18474135 (Version 1)
Quarter: 2020Q4

REPORT INFORMATION
  Report Type: Spontaneous
  Country: US (occurrence: US)
  Receive Date: 20201106
  Receipt Date: 20201106
  Transmission Date: 20210114
  Serious: No
  Sender: FDA-Public Use
  Company Number: US-PFIZER INC-2020427062

PATIENT
  Age: 64 Year
  Sex: Male
  Weight: 125.19 kg

DRUGS (1)
  1. FUROSEMIDE. [Suspect]
     Active Substance: FUROSEMIDE
     Indication: SWELLING
     Dosage: 20 MG

REACTIONS (1)
  - Drug ineffective [Unknown]
